FAERS Safety Report 4430754-X (Version None)
Quarter: 2004Q3

REPORT INFORMATION
  Report Type: 
  Country: None (occurrence: None)
  Receive Date: 20040818
  Receipt Date: 20040803
  Transmission Date: 20050211
  Serious: Yes (Disabling)
  Sender: FDA-Public Use
  Company Number: GBS040815359

PATIENT
  Age: 59 Year
  Sex: Female
  Weight: 55 kg

DRUGS (2)
  1. RALOXIFENE HCL [Suspect]
     Indication: OSTEOPENIA
     Dosage: 60 MG
     Dates: start: 20000801
  2. FLUOXETINE [Concomitant]

REACTIONS (2)
  - MEMORY IMPAIRMENT [None]
  - SPEECH DISORDER [None]
